FAERS Safety Report 6147230-9 (Version None)
Quarter: 2009Q2

REPORT INFORMATION
  Report Type: 
  Country: None (occurrence: None)
  Receive Date: 20090408
  Receipt Date: 20070620
  Transmission Date: 20091009
  Serious: Yes (Death, Hospitalization, Other)
  Sender: FDA-Public Use
  Company Number: US-ASTRAZENECA-2006UW21573

PATIENT
  Age: 378 Month
  Sex: Female

DRUGS (11)
  1. SEROQUEL [Suspect]
     Indication: DEPRESSION
     Route: 048
     Dates: start: 20010101, end: 20041201
  2. SEROQUEL [Suspect]
     Indication: PSYCHOTIC DISORDER
     Route: 048
     Dates: start: 20010101, end: 20041201
  3. SEROQUEL [Suspect]
     Dosage: 100 TO 500 MG
     Route: 048
     Dates: start: 20010801, end: 20010919
  4. SEROQUEL [Suspect]
     Dosage: 100 TO 500 MG
     Route: 048
     Dates: start: 20010801, end: 20010919
  5. HYDROCHLOROTHIAZIDE [Concomitant]
  6. DEPAKOTE [Concomitant]
  7. TYLENOL [Concomitant]
  8. ATIVAN [Concomitant]
  9. NICORETTE [Concomitant]
  10. MILK OF MAGNESIA [Concomitant]
  11. GEODON [Concomitant]

REACTIONS (8)
  - ACNE [None]
  - DEATH [None]
  - DIABETES MELLITUS [None]
  - HYPERTENSION [None]
  - PSYCHOTIC DISORDER [None]
  - RENAL FAILURE [None]
  - RENAL TUMOUR EXCISION [None]
  - URINARY TRACT INFECTION [None]
